FAERS Safety Report 11634255 (Version 2)
Quarter: 2015Q4

REPORT INFORMATION
  Report Type: Spontaneous
  Country: US (occurrence: None)
  Receive Date: 20151015
  Receipt Date: 20151215
  Transmission Date: 20160304
  Serious: Yes (Death, Life-Threatening, Hospitalization, Other)
  Sender: FDA-Public Use
  Company Number: US-MDT-ADR-2015-01963

PATIENT
  Age: 70 Year
  Sex: Female

DRUGS (2)
  1. BUPIVACAINE INTRATHECAL 10 MG/ML [Suspect]
     Active Substance: BUPIVACAINE
     Indication: PAIN
     Dosage: 1.9 MG/DAY
  2. COMPOUNDED BACLOFEN INTRATHECAL 250 MCG/ML [Suspect]
     Active Substance: BACLOFEN
     Indication: PAIN
     Dosage: 49.96 MCG/DAY

REACTIONS (5)
  - Disease complication [None]
  - Pyrexia [None]
  - Cardiac arrest [None]
  - Cardiac disorder [None]
  - Brain death [None]
